FAERS Safety Report 8471348 (Version 3)
Quarter: 2012Q4

REPORT INFORMATION
  Report Type: 
  Country: IT (occurrence: IT)
  Receive Date: 20120322
  Receipt Date: 20121003
  Transmission Date: 20130627
  Serious: Yes (Other)
  Sender: FDA-Public Use
  Company Number: IT-JNJFOC-20120308010

PATIENT
  Sex: Female

DRUGS (2)
  1. KETOCONAZOLE [Suspect]
     Indication: PITUITARY-DEPENDENT CUSHING^S SYNDROME
     Route: 065
  2. RADIATION THERAPY [Suspect]
     Indication: PITUITARY-DEPENDENT CUSHING^S SYNDROME
     Dosage: central part received a maximum dose of 50 Gy and the tumor margin was 25 Gy dose at 50% isodose
     Route: 065

REACTIONS (5)
  - Abortion spontaneous [Recovered/Resolved]
  - Hypertension [Unknown]
  - Premature separation of placenta [Recovered/Resolved]
  - Exposure during pregnancy [Recovered/Resolved]
  - Vaginal haemorrhage [Unknown]
